FAERS Safety Report 6360708-8 (Version None)
Quarter: 2009Q3

REPORT INFORMATION
  Report Type: 
  Country: None (occurrence: None)
  Receive Date: 20090918
  Receipt Date: 20090909
  Transmission Date: 20100115
  Serious: Yes (Hospitalization, Other)
  Sender: FDA-Public Use
  Company Number: US-BIOGENIDEC-2009BI028695

PATIENT
  Age: 53 Year
  Sex: Female
  Weight: 63 kg

DRUGS (1)
  1. AVONEX [Suspect]
     Indication: MULTIPLE SCLEROSIS
     Route: 030
     Dates: start: 20031008

REACTIONS (9)
  - BUNION [None]
  - CERVICAL VERTEBRAL FRACTURE [None]
  - EXOSTOSIS [None]
  - FEMUR FRACTURE [None]
  - INTRACRANIAL ANEURYSM [None]
  - JOINT INJURY [None]
  - LIMB INJURY [None]
  - ROAD TRAFFIC ACCIDENT [None]
  - THYROID NEOPLASM [None]
